FAERS Safety Report 16544931 (Version 4)
Quarter: 2019Q3

REPORT INFORMATION
  Report Type: Spontaneous
  Country: AU (occurrence: AU)
  Receive Date: 20190709
  Receipt Date: 20190920
  Transmission Date: 20191004
  Serious: Yes (Hospitalization)
  Sender: FDA-Public Use
  Company Number: AU-CELGENEUS-AUS-20190701189

PATIENT
  Age: 77 Year
  Sex: Female
  Weight: 77.4 kg

DRUGS (62)
  1. AMLODIPINE [Concomitant]
     Active Substance: AMLODIPINE BESYLATE
     Indication: HYPERTENSION
     Dosage: 2.5 MILLIGRAM
     Route: 048
     Dates: start: 20180518, end: 20180606
  2. VENTOLIN [Concomitant]
     Active Substance: ALBUTEROL SULFATE
     Indication: CHRONIC OBSTRUCTIVE PULMONARY DISEASE
     Dosage: 2 PUFF
     Route: 055
     Dates: start: 2012
  3. TEMAZEPAM. [Concomitant]
     Active Substance: TEMAZEPAM
     Indication: INSOMNIA
     Route: 048
     Dates: start: 20180507
  4. POSACONAZOLE [Concomitant]
     Active Substance: POSACONAZOLE
     Indication: ANTIFUNGAL PROPHYLAXIS
     Dosage: 300 MILLIGRAM
     Route: 048
     Dates: start: 20180523, end: 20180625
  5. COLOXYL WITH SENNA [Concomitant]
     Active Substance: DOCUSATE\SENNOSIDES
     Indication: CONSTIPATION
     Dosage: 2 TABLETS
     Route: 048
     Dates: start: 20180605, end: 20180606
  6. TAZOCIN [Concomitant]
     Active Substance: PIPERACILLIN SODIUM\TAZOBACTAM SODIUM
     Indication: DERMATITIS INFECTED
     Route: 041
     Dates: start: 2019
  7. VENETOCLAX. [Concomitant]
     Active Substance: VENETOCLAX
     Dosage: 50 MILLIGRAM
     Route: 048
     Dates: start: 20180606, end: 20190626
  8. IRBESARTAN AND HIDROCLOROTIAZIDA (KARVEA HCT) [Concomitant]
     Indication: HYPERTENSION
     Dosage: 300/25 MG
     Route: 048
     Dates: start: 2008, end: 20180608
  9. PARACETAMOL [Concomitant]
     Active Substance: ACETAMINOPHEN
     Indication: PYREXIA
     Route: 048
     Dates: start: 20180607, end: 20180611
  10. MOVICOL [Concomitant]
     Active Substance: POLYETHYLENE GLYCOL 3350\POTASSIUM CHLORIDE\SODIUM BICARBONATE\SODIUM CHLORIDE
     Indication: CONSTIPATION
     Dosage: 1 SACHET
     Route: 048
     Dates: start: 20180606, end: 20180609
  11. CEFUROXIME. [Concomitant]
     Active Substance: CEFUROXIME
     Indication: NEUTROPENIA
     Dosage: 1000 MILLIGRAM
     Route: 048
     Dates: start: 20180628, end: 20180702
  12. CENTRUM MULTIVITAMIN 50+ [Concomitant]
     Indication: SUPPLEMENTATION THERAPY
     Route: 065
     Dates: start: 201806
  13. AMLODIPINE [Concomitant]
     Active Substance: AMLODIPINE BESYLATE
     Route: 048
     Dates: start: 20180605, end: 20180605
  14. AMLODIPINE [Concomitant]
     Active Substance: AMLODIPINE BESYLATE
     Dosage: 5 MILLIGRAM
     Route: 048
     Dates: start: 20180607, end: 20180608
  15. SERETIDE ACCUHALER (FLUTICASONE PROPIONATE, SALMETEROL XINAFOATE) [Concomitant]
     Indication: CHRONIC OBSTRUCTIVE PULMONARY DISEASE
     Dosage: 4 PUFF
     Route: 065
     Dates: start: 2012
  16. PENTAMIDINE [Concomitant]
     Active Substance: PENTAMIDINE
     Indication: INFECTION PROPHYLAXIS
     Route: 065
     Dates: start: 20180608, end: 20181026
  17. FRUSEMIDE [Concomitant]
     Active Substance: FUROSEMIDE
     Indication: FLUID OVERLOAD
     Dosage: 40 MILLIGRAM
     Route: 041
     Dates: start: 20180607, end: 20180607
  18. LACTULOSE. [Concomitant]
     Active Substance: LACTULOSE
     Indication: CONSTIPATION
     Dosage: 60 MILLILITER
     Route: 048
     Dates: start: 20180610, end: 20180611
  19. MAGNESIA S PELLEGRINO [Concomitant]
     Dosage: 1 TEASPOON
     Route: 048
     Dates: start: 20180624, end: 20180625
  20. IRBESARTAN. [Concomitant]
     Active Substance: IRBESARTAN
     Dosage: 300 MILLIGRAM
     Route: 048
     Dates: start: 20190627
  21. ATORVASTATIN [Concomitant]
     Active Substance: ATORVASTATIN
     Indication: HYPERCHOLESTEROLAEMIA
     Dosage: 40 MILLIGRAM
     Route: 065
     Dates: start: 2008, end: 20180522
  22. SPIRIVA [Concomitant]
     Active Substance: TIOTROPIUM BROMIDE MONOHYDRATE
     Indication: CHRONIC OBSTRUCTIVE PULMONARY DISEASE
     Dosage: 2 PUFF
     Route: 065
     Dates: start: 2012
  23. TAZOCIN [Concomitant]
     Active Substance: PIPERACILLIN SODIUM\TAZOBACTAM SODIUM
     Indication: DIVERTICULITIS
     Route: 041
     Dates: start: 20180623, end: 20180623
  24. CEFUROXIME. [Concomitant]
     Active Substance: CEFUROXIME
     Indication: PNEUMONIA
  25. AZACITIDINE. [Suspect]
     Active Substance: AZACITIDINE
     Dosage: 37.5 MILLIGRAM/SQ. METER
     Route: 058
     Dates: start: 20181005, end: 20190706
  26. AZACITIDINE. [Suspect]
     Active Substance: AZACITIDINE
     Dosage: 37.5 MILLIGRAM/SQ. METER
     Route: 058
     Dates: start: 201907
  27. VENETOCLAX. [Concomitant]
     Active Substance: VENETOCLAX
     Indication: ACUTE MYELOID LEUKAEMIA
     Dosage: 10 MILLIGRAM
     Route: 048
     Dates: start: 20180604, end: 20180604
  28. AMLODIPINE [Concomitant]
     Active Substance: AMLODIPINE BESYLATE
     Dosage: 10 MILLIGRAM
     Route: 048
     Dates: start: 20180609, end: 20180830
  29. MIRTAZAPINE. [Concomitant]
     Active Substance: MIRTAZAPINE
     Indication: DEPRESSION
     Dosage: 15 MILLIGRAM
     Route: 048
     Dates: start: 20180515
  30. SWISSE MAGNESIUM AND CALCIUM + D3 [Concomitant]
     Indication: PROPHYLAXIS
     Route: 048
     Dates: start: 2016, end: 2018
  31. SWISSE MAGNESIUM AND CALCIUM + D3 [Concomitant]
     Indication: MUSCLE SPASMS
  32. FAMCICLOVIR. [Concomitant]
     Active Substance: FAMCICLOVIR
     Dosage: 750 MILLIGRAM
     Route: 048
     Dates: start: 20180612
  33. POSACONAZOLE [Concomitant]
     Active Substance: POSACONAZOLE
     Indication: ANTIBIOTIC THERAPY
     Dosage: 300 MILLIGRAM
     Route: 048
     Dates: start: 20180626
  34. VENETOCLAX. [Concomitant]
     Active Substance: VENETOCLAX
     Dosage: 50 MILLIGRAM
     Route: 048
     Dates: start: 20190702
  35. AMLODIPINE [Concomitant]
     Active Substance: AMLODIPINE BESYLATE
     Dosage: 5 MILLIGRAM
     Route: 048
     Dates: start: 20190305
  36. ONDANSETRON [Concomitant]
     Active Substance: ONDANSETRON
     Indication: PROPHYLAXIS OF NAUSEA AND VOMITING
     Dosage: 4.0 MG - 8.0 MG
     Route: 048
     Dates: start: 20180604
  37. METOCLOPRAMIDE. [Concomitant]
     Active Substance: METOCLOPRAMIDE
     Indication: PROPHYLAXIS OF NAUSEA AND VOMITING
     Dosage: 30 MILLIGRAM
     Route: 048
     Dates: start: 20180606, end: 20180612
  38. MOXICILLIN CLAVULANIC ACID [Concomitant]
     Indication: CREPITATIONS
     Dosage: 875/125 MG
     Route: 048
     Dates: start: 20180610, end: 20180615
  39. MOXICILLIN CLAVULANIC ACID [Concomitant]
     Indication: DERMATITIS INFECTED
     Route: 048
     Dates: start: 2019
  40. PARACETAMOL [Concomitant]
     Active Substance: ACETAMINOPHEN
     Indication: PNEUMONIA
     Route: 048
     Dates: start: 20180623, end: 20180626
  41. CEFEPIME [Concomitant]
     Active Substance: CEFEPIME HYDROCHLORIDE
     Indication: FEBRILE NEUTROPENIA
  42. AZACITIDINE. [Suspect]
     Active Substance: AZACITIDINE
     Indication: ACUTE MYELOID LEUKAEMIA
     Dosage: 75 MILLIGRAM/SQ. METER
     Route: 058
     Dates: start: 20180604, end: 20180819
  43. VENETOCLAX. [Concomitant]
     Active Substance: VENETOCLAX
     Dosage: 20 MILLIGRAM
     Route: 048
     Dates: start: 20180605, end: 20180605
  44. METFORMIN [Concomitant]
     Active Substance: METFORMIN HYDROCHLORIDE
     Indication: TYPE 2 DIABETES MELLITUS
     Dosage: 500 MILLIGRAM
     Route: 048
     Dates: start: 201709, end: 20180830
  45. AUGMENTIN DUO FORTE [Concomitant]
     Active Substance: AMOXICILLIN\CLAVULANATE POTASSIUM
     Indication: PNEUMONIA
     Dosage: 875/125 MG
     Route: 048
     Dates: start: 20180607, end: 20180607
  46. CEFTRIAXONE. [Concomitant]
     Active Substance: CEFTRIAXONE
     Indication: PNEUMONIA
     Dosage: 2 MILLIGRAM
     Route: 041
     Dates: start: 20180607, end: 20180609
  47. MAGNESIA S PELLEGRINO [Concomitant]
     Indication: CONSTIPATION
     Dosage: 1 SACHET
     Route: 048
     Dates: start: 20180610, end: 20180610
  48. CEFEPIME [Concomitant]
     Active Substance: CEFEPIME HYDROCHLORIDE
     Indication: PNEUMONIA
     Dosage: 6 GRAMS
     Route: 041
     Dates: start: 20180623, end: 20180625
  49. CEFEPIME [Concomitant]
     Active Substance: CEFEPIME HYDROCHLORIDE
     Indication: NEUTROPENIA
     Dosage: 6 GRAMS
     Route: 041
     Dates: start: 20190303, end: 20190304
  50. METRONIDAZOLE. [Concomitant]
     Active Substance: METRONIDAZOLE
     Indication: DIVERTICULITIS
     Dosage: 6 GRAMS
     Route: 041
     Dates: start: 20180623, end: 20180628
  51. IRBESARTAN. [Concomitant]
     Active Substance: IRBESARTAN
     Indication: HYPERTENSION
     Dosage: 150 MILLIGRAM
     Route: 048
     Dates: start: 20190305
  52. VENTOLIN [Concomitant]
     Active Substance: ALBUTEROL SULFATE
     Indication: ANTIFUNGAL PROPHYLAXIS
     Route: 055
     Dates: start: 20180608, end: 20181026
  53. FAMCICLOVIR. [Concomitant]
     Active Substance: FAMCICLOVIR
     Indication: ANTIVIRAL PROPHYLAXIS
     Dosage: 1000 MILLIGRAM
     Route: 048
     Dates: start: 20180521, end: 20180612
  54. PARACETAMOL [Concomitant]
     Active Substance: ACETAMINOPHEN
     Indication: DIVERTICULITIS
     Dosage: 4 GRAM
     Route: 048
     Dates: start: 20190303, end: 20190306
  55. MAGNESIA S PELLEGRINO [Concomitant]
     Dosage: 4 TEASPOONS
     Route: 048
     Dates: start: 20180625, end: 20180629
  56. GENTAMICIN. [Concomitant]
     Active Substance: GENTAMICIN
     Indication: DIVERTICULITIS
     Route: 041
     Dates: start: 20180623, end: 20180623
  57. FENTANYL. [Concomitant]
     Active Substance: FENTANYL
     Indication: BIOPSY BONE MARROW
     Dosage: 100 UG
     Route: 041
     Dates: start: 20180628, end: 20180628
  58. MIDAZOLAM [Concomitant]
     Active Substance: MIDAZOLAM HYDROCHLORIDE
     Indication: BIOPSY BONE MARROW
     Route: 041
     Dates: start: 20180628, end: 20180628
  59. LIGNOCAINE 2% [Concomitant]
     Active Substance: LIDOCAINE HYDROCHLORIDE
     Indication: BIOPSY BONE MARROW
     Dosage: 100 MG/ 5 ML
     Route: 058
     Dates: start: 20180628, end: 20180628
  60. VOLTAREN [Concomitant]
     Active Substance: DICLOFENAC SODIUM
     Indication: RASH
     Dosage: DOSE: 1 APPLICATION
     Route: 061
     Dates: start: 20181005
  61. VOLTAREN [Concomitant]
     Active Substance: DICLOFENAC SODIUM
     Indication: PHLEBITIS SUPERFICIAL
  62. FLUVAX [Concomitant]
     Active Substance: INFLUENZA VIRUS VACCINE
     Indication: PROPHYLAXIS
     Dosage: 1.5 MILLILITER
     Route: 030
     Dates: start: 20190503, end: 20190503

REACTIONS (2)
  - Dermatitis infected [Recovered/Resolved]
  - Acute myocardial infarction [Recovered/Resolved]

NARRATIVE: CASE EVENT DATE: 20190626
